FAERS Safety Report 8768057 (Version 2)
Quarter: 2012Q4

REPORT INFORMATION
  Report Type: Report from Study
  Country: JP (occurrence: JP)
  Receive Date: 20120905
  Receipt Date: 20121221
  Transmission Date: 20130627
  Serious: Yes (Other)
  Sender: FDA-Public Use
  Company Number: JP-VERTEX PHARMACEUTICAL INC.-AE-2012-006243

PATIENT
  Age: 71 Year
  Sex: Female

DRUGS (17)
  1. VX-950 (TELAPREVIR) [Suspect]
     Indication: HEPATITIS C
     Dosage: 1500 mg, qd
     Route: 048
     Dates: start: 20120308, end: 20120516
  2. VX-950 (TELAPREVIR) [Suspect]
     Dosage: 750 mg, qd
     Route: 048
     Dates: start: 20120517, end: 20120530
  3. RIBAVIRIN [Suspect]
     Indication: CHRONIC HEPATITIS C
     Dosage: 400 mg, qd
     Route: 048
     Dates: start: 20120308, end: 20120404
  4. RIBAVIRIN [Suspect]
     Dosage: 200 mg, qd
     Route: 048
     Dates: start: 20120405, end: 20120411
  5. RIBAVIRIN [Suspect]
     Dosage: 100 mg, qod
     Route: 048
     Dates: start: 20120412, end: 20120502
  6. RIBAVIRIN [Suspect]
     Dosage: 400 mg, qd
     Route: 048
     Dates: start: 20120712, end: 20120822
  7. RIBAVIRIN [Suspect]
     Dosage: 200 mg, qd
     Route: 048
     Dates: start: 20120823
  8. PEGINTERFERON ALFA-2B [Suspect]
     Indication: CHRONIC HEPATITIS C
     Dosage: 1.5 ?g/kg, QW
     Route: 058
     Dates: start: 20120308, end: 20120314
  9. PEGINTERFERON ALFA-2B [Suspect]
     Dosage: 0.8 ?g/kg, QW
     Route: 058
     Dates: start: 20120315, end: 20120321
  10. PEGINTERFERON ALFA-2B [Suspect]
     Dosage: 1.2 ?g/kg, QW
     Route: 058
     Dates: start: 20120322, end: 20120913
  11. URSO [Concomitant]
     Dosage: 300 mg, qd
     Route: 048
     Dates: end: 20120405
  12. PROHEPARUM [Concomitant]
     Route: 048
     Dates: end: 20120405
  13. JANUVIA [Concomitant]
     Dosage: 50 mg, qd
     Route: 048
  14. AMLODIPINE OD [Concomitant]
     Dosage: 5 mg, qd
     Route: 048
     Dates: end: 20120425
  15. AMLODIPINE OD [Concomitant]
     Dosage: 2.5 mg, qd
     Route: 048
     Dates: start: 20120426
  16. XYZAL [Concomitant]
     Dosage: 5 mg, qd
     Route: 048
  17. ALLOPURINOL [Concomitant]
     Dosage: 100 mg, qd
     Route: 048
     Dates: start: 20120316, end: 20120607

REACTIONS (2)
  - Delirium [Recovered/Resolved]
  - Retinopathy [Recovered/Resolved]
